FAERS Safety Report 23329463 (Version 1)
Quarter: 2023Q4

REPORT INFORMATION
  Report Type: Spontaneous
  Country: US (occurrence: US)
  Receive Date: 20231222
  Receipt Date: 20231222
  Transmission Date: 20240110
  Serious: No
  Sender: FDA-Public Use
  Company Number: US-PADAGIS-2023PAD01776

PATIENT

DRUGS (4)
  1. PERMETHRIN [Suspect]
     Active Substance: PERMETHRIN
     Indication: Acarodermatitis
     Dosage: UNK UNK, BID
     Route: 061
     Dates: start: 202307
  2. PERMETHRIN [Suspect]
     Active Substance: PERMETHRIN
     Dosage: AFTER 2 WEEK, THEN OFF A WEEK
     Route: 061
     Dates: start: 202307
  3. WARFARIN [Concomitant]
     Active Substance: WARFARIN
     Indication: Anticoagulant therapy
     Dosage: UNK, UNK
     Route: 048
  4. DIAZEPAM [Concomitant]
     Active Substance: DIAZEPAM
     Indication: Product used for unknown indication
     Dosage: UNK, UNK
     Route: 048

REACTIONS (3)
  - Drug ineffective [Unknown]
  - Product prescribing error [Unknown]
  - Product physical consistency issue [Unknown]

NARRATIVE: CASE EVENT DATE: 20230701
